FAERS Safety Report 15107901 (Version 5)
Quarter: 2018Q4

REPORT INFORMATION
  Report Type: Spontaneous
  Country: JP (occurrence: JP)
  Receive Date: 20180704
  Receipt Date: 20181008
  Transmission Date: 20190204
  Serious: Yes (Death, Hospitalization)
  Sender: FDA-Public Use
  Company Number: JP-ASTRAZENECA-2018SE85535

PATIENT
  Age: 28902 Day
  Sex: Male
  Weight: 52 kg

DRUGS (11)
  1. ALFACALCIDOL [Concomitant]
     Active Substance: ALFACALCIDOL
     Dosage: 0.25 MCG, EVERY DAY AFTER BREAKFAST
     Route: 048
     Dates: end: 20180626
  2. FOLIAMIN [Concomitant]
     Active Substance: FOLIC ACID
     Dosage: 5 MG, EVERY DAY, AFTER BREAKFAST
     Route: 048
     Dates: end: 20180626
  3. FERROSTEC [Concomitant]
     Active Substance: SODIUM FERROUS CITRATE
     Dosage: 100 MG, EVERY DAY, BEFORE BEDTIME
     Route: 048
  4. FERROSTEC [Concomitant]
     Active Substance: SODIUM FERROUS CITRATE
     Route: 048
     Dates: end: 20180626
  5. ASPARA POTASSIUM [Concomitant]
     Active Substance: POTASSIUM ASPARTATE
     Dosage: 300 MG, TWO TIMES A DAY, AFTER BREAKFAST AND DINNER
     Route: 048
     Dates: end: 20180626
  6. BROTIZOLAM [Concomitant]
     Active Substance: BROTIZOLAM
     Dosage: 0.25 MG, EVERY DAY, BEFORE BEDTIME
     Route: 048
  7. PITAVASTATIN CA [Concomitant]
     Active Substance: PITAVASTATIN CALCIUM
     Dosage: 1 MG, EVERY DAY, AFTER BREAKFAST
     Route: 048
     Dates: end: 20180626
  8. NEXIUM [Concomitant]
     Active Substance: ESOMEPRAZOLE MAGNESIUM
     Dosage: 20 MG, EVERY DAY, AFTER BREAKFAST
     Route: 048
     Dates: end: 20180626
  9. ZOLPIDEM TARTRATE. [Concomitant]
     Active Substance: ZOLPIDEM TARTRATE
     Dosage: 10 MG, EVERY DAY, BEFORE BEDTIME
     Route: 048
  10. BRILINTA [Suspect]
     Active Substance: TICAGRELOR
     Indication: ACUTE MYOCARDIAL INFARCTION
     Dosage: 90 MG, TWO TIMES A DAY, AFTER BREAKFAST AND DINNER
     Route: 048
     Dates: start: 20180426, end: 20180626
  11. BAYASPIRIN [Concomitant]
     Active Substance: ASPIRIN
     Indication: ACUTE MYOCARDIAL INFARCTION
     Dosage: 100 MG, EVERY DAY, AFTER BREAKFAST
     Route: 048
     Dates: end: 20180626

REACTIONS (2)
  - Cardiac failure [Unknown]
  - Pneumonia [Fatal]

NARRATIVE: CASE EVENT DATE: 20180625
